FAERS Safety Report 17930607 (Version 4)
Quarter: 2021Q2

REPORT INFORMATION
  Report Type: Report from Study
  Country: None (occurrence: CA)
  Receive Date: 20200623
  Receipt Date: 20210406
  Transmission Date: 20210717
  Serious: Yes (Other)
  Sender: FDA-Public Use
  Company Number: CA-ABBVIE-20K-028-3399597-00

PATIENT
  Age: 67 Year
  Sex: Female

DRUGS (4)
  1. RINVOQ [Suspect]
     Active Substance: UPADACITINIB
     Route: 048
  2. RINVOQ [Suspect]
     Active Substance: UPADACITINIB
     Route: 048
  3. RINVOQ [Suspect]
     Active Substance: UPADACITINIB
     Indication: RHEUMATOID ARTHRITIS
     Route: 048
     Dates: start: 20200501
  4. RINVOQ [Suspect]
     Active Substance: UPADACITINIB
     Route: 048

REACTIONS (19)
  - Migraine [Recovered/Resolved]
  - Hepatic enzyme increased [Not Recovered/Not Resolved]
  - Gastrointestinal pain [Recovered/Resolved]
  - Dyspepsia [Recovering/Resolving]
  - Diarrhoea [Unknown]
  - Swelling [Recovered/Resolved]
  - Weight increased [Unknown]
  - Abdominal pain upper [Recovered/Resolved]
  - Constipation [Not Recovered/Not Resolved]
  - Dyspepsia [Unknown]
  - Dyspepsia [Recovered/Resolved]
  - Pain [Unknown]
  - Nausea [Recovering/Resolving]
  - Nasopharyngitis [Unknown]
  - Feeling abnormal [Recovering/Resolving]
  - Liver disorder [Recovered/Resolved]
  - Liver disorder [Unknown]
  - Vomiting [Unknown]
  - Alanine aminotransferase increased [Unknown]

NARRATIVE: CASE EVENT DATE: 2020
